FAERS Safety Report 18931664 (Version 1)
Quarter: 2021Q1

REPORT INFORMATION
  Report Type: Spontaneous
  Country: US (occurrence: US)
  Receive Date: 20210223
  Receipt Date: 20210223
  Transmission Date: 20210420
  Serious: No
  Sender: FDA-Public Use
  Company Number: US-IGSA-BIG0011452

PATIENT
  Age: 62 Year
  Sex: Female
  Weight: 71 kg

DRUGS (11)
  1. METFORMIN HCL [Concomitant]
     Active Substance: METFORMIN HYDROCHLORIDE
  2. ACLOVATE [Concomitant]
     Active Substance: ALCLOMETASONE DIPROPIONATE
  3. TRELEGY ELLIPTA [Concomitant]
     Active Substance: FLUTICASONE FUROATE\UMECLIDINIUM BROMIDE\VILANTEROL TRIFENATATE
  4. RESTASIS [Concomitant]
     Active Substance: CYCLOSPORINE
  5. DALIRESP [Concomitant]
     Active Substance: ROFLUMILAST
  6. VYVANSE [Concomitant]
     Active Substance: LISDEXAMFETAMINE DIMESYLATE
  7. PREDNISOLONE. [Concomitant]
     Active Substance: PREDNISOLONE
  8. PROLASTIN?C LIQUID [Suspect]
     Active Substance: .ALPHA.1-PROTEINASE INHIBITOR HUMAN
     Indication: ALPHA-1 ANTITRYPSIN DEFICIENCY
     Dosage: 4260 MILLIGRAM, Q.WK.
     Route: 042
     Dates: start: 20200810
  9. PROLASTIN?C LIQUID [Suspect]
     Active Substance: .ALPHA.1-PROTEINASE INHIBITOR HUMAN
     Dosage: 4260 MILLIGRAM, Q.WK.
     Route: 042
     Dates: start: 20190508
  10. DILTIAZEM HCL [Concomitant]
     Active Substance: DILTIAZEM HYDROCHLORIDE
  11. LASIX [Concomitant]
     Active Substance: FUROSEMIDE

REACTIONS (3)
  - Intentional dose omission [Recovering/Resolving]
  - Rash [Recovering/Resolving]
  - Pyrexia [Recovering/Resolving]

NARRATIVE: CASE EVENT DATE: 202009
